FAERS Safety Report 7351209-9 (Version None)
Quarter: 2011Q1

REPORT INFORMATION
  Report Type: 
  Country: None (occurrence: None)
  Receive Date: 20110304
  Receipt Date: 20110221
  Transmission Date: 20110831
  Serious: Yes (Death, Hospitalization)
  Sender: FDA-Public Use
  Company Number: ACO_21883_2011

PATIENT
  Age: 58 Year
  Sex: Female

DRUGS (5)
  1. AMPYRA [Suspect]
     Indication: PRODUCT USED FOR UNKNOWN INDICATION
     Dosage: 10 MG, Q 12 HRS, ORAL
     Route: 048
     Dates: start: 20101001
  2. AEROBID [Concomitant]
  3. AFRIN (ALLERGY SPRAY /00070001/ (OXYMETAZOLINE) [Concomitant]
  4. REBIF [Concomitant]
  5. BENADRYL [Concomitant]

REACTIONS (4)
  - RESPIRATORY FAILURE [None]
  - CALCULUS BLADDER [None]
  - URINARY TRACT INFECTION [None]
  - LUNG CANCER METASTATIC [None]
